FAERS Safety Report 5610796-9 (Version None)
Quarter: 2008Q1

REPORT INFORMATION
  Report Type: 
  Country: None (occurrence: None)
  Receive Date: 20080111
  Receipt Date: 20071012
  Transmission Date: 20080703
  Serious: Yes (Other)
  Sender: FDA-Public Use
  Company Number: HQWYE205617JUL04

PATIENT
  Age: 59 Year
  Sex: Female
  Weight: 87.17 kg

DRUGS (2)
  1. PREMPRO [Suspect]
     Indication: HOT FLUSH
     Dosage: ORAL
     Route: 048
     Dates: start: 19900101, end: 19970101
  2. PREMARIN [Suspect]
     Indication: HOT FLUSH
     Dosage: 0.9 MG, ORAL
     Route: 048
     Dates: start: 19870101

REACTIONS (1)
  - BREAST CANCER [None]
